FAERS Safety Report 26126864 (Version 1)
Quarter: 2025Q4

REPORT INFORMATION
  Report Type: Spontaneous
  Country: EU (occurrence: EU)
  Receive Date: 20251205
  Receipt Date: 20251205
  Transmission Date: 20260118
  Serious: Yes (Other)
  Sender: MYLAN
  Company Number: None

PATIENT
  Age: 14 Year
  Sex: Female
  Weight: 55 kg

DRUGS (4)
  1. ZOLOFT [Suspect]
     Active Substance: SERTRALINE HYDROCHLORIDE
     Indication: Product used for unknown indication
     Dosage: 2800 MILLIGRAM, QD
     Dates: start: 20250824, end: 20250824
  2. ZOLOFT [Suspect]
     Active Substance: SERTRALINE HYDROCHLORIDE
     Dosage: 2800 MILLIGRAM, QD
     Route: 048
     Dates: start: 20250824, end: 20250824
  3. ZOLOFT [Suspect]
     Active Substance: SERTRALINE HYDROCHLORIDE
     Dosage: 2800 MILLIGRAM, QD
     Route: 048
     Dates: start: 20250824, end: 20250824
  4. ZOLOFT [Suspect]
     Active Substance: SERTRALINE HYDROCHLORIDE
     Dosage: 2800 MILLIGRAM, QD
     Dates: start: 20250824, end: 20250824

REACTIONS (4)
  - Sluggishness [Unknown]
  - Suicide attempt [Unknown]
  - Somnolence [Unknown]
  - Intentional overdose [Unknown]

NARRATIVE: CASE EVENT DATE: 20250824
